FAERS Safety Report 12983262 (Version 4)
Quarter: 2016Q4

REPORT INFORMATION
  Report Type: Spontaneous
  Country: US (occurrence: US)
  Receive Date: 20161129
  Receipt Date: 20161222
  Transmission Date: 20170207
  Serious: Yes (Other)
  Sender: FDA-Public Use
  Company Number: US-TEVA-716241USA

PATIENT
  Age: 57 Year
  Sex: Female

DRUGS (3)
  1. PREDNISONE. [Concomitant]
     Active Substance: PREDNISONE
     Indication: BRONCHITIS
  2. QVAR [Suspect]
     Active Substance: BECLOMETHASONE DIPROPIONATE
     Indication: ASTHMA
     Dosage: 2 PUFFS
     Dates: start: 20161106, end: 20161106
  3. VITAMINS [Concomitant]
     Active Substance: VITAMINS

REACTIONS (4)
  - Swelling face [Recovered/Resolved]
  - Hypersensitivity [Recovered/Resolved]
  - Economic problem [Unknown]
  - Lip swelling [Recovered/Resolved]

NARRATIVE: CASE EVENT DATE: 201611
